FAERS Safety Report 6850352-8 (Version None)
Quarter: 2010Q3

REPORT INFORMATION
  Report Type: 
  Country: None (occurrence: None)
  Receive Date: 20100716
  Receipt Date: 20071018
  Transmission Date: 20110219
  Serious: No
  Sender: FDA-Public Use
  Company Number: US-PFIZER INC-2007088803

PATIENT
  Age: 70 Year
  Sex: Female
  Weight: 43.636 kg

DRUGS (2)
  1. CHANTIX [Suspect]
     Indication: SMOKING CESSATION THERAPY
     Route: 048
     Dates: start: 20070908, end: 20070918
  2. INDERAL [Concomitant]

REACTIONS (1)
  - VOMITING [None]
